FAERS Safety Report 6416977-9 (Version None)
Quarter: 2009Q4

REPORT INFORMATION
  Report Type: 
  Country: None (occurrence: None)
  Receive Date: 20091023
  Receipt Date: 20091014
  Transmission Date: 20100525
  Serious: Yes (Death, Hospitalization)
  Sender: FDA-Public Use
  Company Number: 89630

PATIENT
  Age: 8 Year
  Sex: Male

DRUGS (1)
  1. ETOPOSIDE [Suspect]
     Indication: MEDULLOBLASTOMA
     Dosage: 25MG/M2/DAY

REACTIONS (5)
  - MALIGNANT NEOPLASM PROGRESSION [None]
  - MEDULLOBLASTOMA [None]
  - METASTASES TO MENINGES [None]
  - SUBDURAL HAEMATOMA [None]
  - THROMBOCYTOPENIA [None]
